FAERS Safety Report 14425763 (Version 1)
Quarter: 2018Q1

REPORT INFORMATION
  Report Type: Spontaneous
  Country: US (occurrence: US)
  Receive Date: 20180122
  Receipt Date: 20180122
  Transmission Date: 20180509
  Serious: No
  Sender: FDA-Public Use
  Company Number: None

PATIENT
  Age: 44 Year
  Sex: Female
  Weight: 51.3 kg

DRUGS (14)
  1. HYDROCODONE-ACETAMINOPHEN [Concomitant]
     Active Substance: ACETAMINOPHEN\HYDROCODONE
  2. L-LYSINE [Concomitant]
     Active Substance: LYSINE
  3. ADVAIR HFA [Concomitant]
     Active Substance: FLUTICASONE PROPIONATE\SALMETEROL XINAFOATE
  4. NORVASC [Concomitant]
     Active Substance: AMLODIPINE BESYLATE
  5. MARLISSA [Concomitant]
     Active Substance: ETHINYL ESTRADIOL\LEVONORGESTREL
  6. COQ10 [Concomitant]
     Active Substance: UBIDECARENONE
  7. WELLBUTRIN [Concomitant]
     Active Substance: BUPROPION HYDROCHLORIDE
  8. VITAMIN D [Concomitant]
     Active Substance: CHOLECALCIFEROL
  9. PROAIR HFA [Concomitant]
     Active Substance: ALBUTEROL SULFATE
  10. CLARITIN [Concomitant]
     Active Substance: LORATADINE
  11. ACIDOPHILUS [Concomitant]
     Active Substance: LACTOBACILLUS ACIDOPHILUS
  12. CRANBERRY. [Concomitant]
     Active Substance: CRANBERRY
  13. CALCIUM [Concomitant]
     Active Substance: CALCIUM
  14. TOPIRAMATE. [Suspect]
     Active Substance: TOPIRAMATE
     Indication: MIGRAINE
     Route: 048
     Dates: start: 20170619

REACTIONS (1)
  - Hair texture abnormal [None]

NARRATIVE: CASE EVENT DATE: 20170622
